FAERS Safety Report 4452364-0 (Version None)
Quarter: 2004Q3

REPORT INFORMATION
  Report Type: 
  Country: None (occurrence: None)
  Receive Date: 20040917
  Receipt Date: 19990412
  Transmission Date: 20050211
  Serious: Yes (Hospitalization)
  Sender: FDA-Public Use
  Company Number: LIT/99/00137/SIM

PATIENT
  Age: 3 Year
  Sex: Female

DRUGS (10)
  1. CYCLOSPORINE [Suspect]
     Indication: RENAL TRANSPLANT
     Dosage: UNK, UNK
     Route: 065
  2. CYCLOSPORINE [Suspect]
     Dosage: 2 MG/KG/DAY
  3. ATGAM [Suspect]
     Indication: RENAL TRANSPLANT
     Dosage: 4 MG/KG EVERY SECOND DAY
     Route: 042
  4. AZATHIOPRINE [Suspect]
     Indication: RENAL TRANSPLANT
     Dosage: 1.5 MG/KG/DAY
     Route: 065
  5. AZATHIOPRINE [Suspect]
     Dosage: 1MG/KG/DAY
     Route: 065
  6. PREDNISONE [Concomitant]
     Indication: RENAL TRANSPLANT
     Dosage: UNK, UNK
     Route: 065
  7. PREDNISONE [Concomitant]
     Dosage: 2 MG/KG/DAY
     Route: 065
  8. BASILIXIMAB [Concomitant]
     Indication: RENAL TRANSPLANT
  9. MYCOPHENOLATE MOFETIL [Concomitant]
     Indication: RENAL TRANSPLANT
  10. HEMODIALYSIS [Concomitant]

REACTIONS (18)
  - BLOOD CREATININE INCREASED [None]
  - BLOOD LACTATE DEHYDROGENASE INCREASED [None]
  - DISEASE RECURRENCE [None]
  - GRAFT COMPLICATION [None]
  - HAEMOLYTIC ANAEMIA [None]
  - HAEMOLYTIC URAEMIC SYNDROME [None]
  - HYPERTENSION [None]
  - KIDNEY TRANSPLANT REJECTION [None]
  - LEUKOPENIA [None]
  - NEPHRECTOMY [None]
  - OEDEMA PERIPHERAL [None]
  - RENAL HAEMORRHAGE [None]
  - RENAL NECROSIS [None]
  - RENAL TUBULAR NECROSIS [None]
  - THROMBOCYTOPENIA [None]
  - THROMBOSIS [None]
  - THROMBOTIC MICROANGIOPATHY [None]
  - TUBULOINTERSTITIAL NEPHRITIS [None]
